FAERS Safety Report 9499800 (Version 5)
Quarter: 2013Q4

REPORT INFORMATION
  Report Type: Spontaneous
  Country: US (occurrence: US)
  Receive Date: 20130905
  Receipt Date: 20131205
  Transmission Date: 20140711
  Serious: Yes (Other)
  Sender: FDA-Public Use
  Company Number: US-JNJFOC-20130717601

PATIENT
  Sex: Female

DRUGS (5)
  1. STELARA [Suspect]
     Indication: PSORIASIS
     Route: 058
     Dates: start: 20130419
  2. STELARA [Suspect]
     Indication: PSORIASIS
     Route: 058
     Dates: start: 201109
  3. CLOBEX [Concomitant]
     Indication: PSORIASIS
     Route: 065
     Dates: start: 20130224
  4. ANTHRALIN [Concomitant]
     Indication: PSORIASIS
     Route: 065
     Dates: start: 20130303
  5. GILDESS FE [Concomitant]
     Indication: CONTRACEPTION
     Route: 065

REACTIONS (1)
  - Exposure during pregnancy [Recovered/Resolved]
